FAERS Safety Report 21022668 (Version 1)
Quarter: 2022Q2

REPORT INFORMATION
  Report Type: Spontaneous
  Country: SE (occurrence: SE)
  Receive Date: 20220629
  Receipt Date: 20220629
  Transmission Date: 20220721
  Serious: Yes (Other)
  Sender: FDA-Public Use
  Company Number: None

PATIENT
  Age: 74 Year
  Sex: Male

DRUGS (5)
  1. JANUVIA [Suspect]
     Active Substance: SITAGLIPTIN PHOSPHATE
     Indication: Type 2 diabetes mellitus
     Dosage: DOSAGE: ^1^
     Route: 048
     Dates: start: 20211110, end: 20220218
  2. ATORVASTATIN [Concomitant]
     Active Substance: ATORVASTATIN
     Dosage: 20 MILLIGRAMS, DOSAGE ^1^
     Dates: start: 20170721
  3. METFORMIN [Concomitant]
     Active Substance: METFORMIN HYDROCHLORIDE
     Dosage: 500 MILLIGRAMS, DOSAGE ^3^
     Dates: start: 20170721
  4. ENALAPRIL [Concomitant]
     Active Substance: ENALAPRIL
     Dosage: 20 MILLIGRAMS, DOSAGE ^1^
     Dates: start: 20200110
  5. FINASTERIDE [Concomitant]
     Active Substance: FINASTERIDE
     Dosage: 5 MILLIGRAMS, DOSAGE ^1^
     Dates: start: 20210329

REACTIONS (7)
  - General physical health deterioration [Recovering/Resolving]
  - Constipation [Recovered/Resolved]
  - Weight decreased [Recovered/Resolved]
  - Anxiety [Recovering/Resolving]
  - Decreased appetite [Recovered/Resolved]
  - Vitamin B12 deficiency [Unknown]
  - Paraesthesia [Recovered/Resolved]

NARRATIVE: CASE EVENT DATE: 20210101
